FAERS Safety Report 24567751 (Version 1)
Quarter: 2024Q4

REPORT INFORMATION
  Report Type: Spontaneous
  Country: BE (occurrence: BE)
  Receive Date: 20241031
  Receipt Date: 20241031
  Transmission Date: 20250115
  Serious: Yes (Life-Threatening, Hospitalization, Other)
  Sender: ALKEM
  Company Number: BE-ALKEM LABORATORIES LIMITED-BE-ALKEM-2024-18472

PATIENT
  Sex: Female
  Weight: 10 kg

DRUGS (2)
  1. METHADONE HYDROCHLORIDE [Suspect]
     Active Substance: METHADONE HYDROCHLORIDE
     Indication: Product used for unknown indication
     Dosage: UNK (CAPSULE)
     Route: 065
  2. SALINE [Concomitant]
     Active Substance: SODIUM CHLORIDE
     Indication: Product used for unknown indication
     Dosage: 100 MILLILITER
     Route: 042

REACTIONS (8)
  - Agonal respiration [Recovering/Resolving]
  - Apnoeic attack [Recovering/Resolving]
  - Cyanosis [Unknown]
  - Toxicity to various agents [Recovering/Resolving]
  - Loss of consciousness [Recovered/Resolved]
  - Pulmonary oedema [Unknown]
  - Accidental exposure to product [Unknown]
  - Hyperglycaemia [Recovering/Resolving]
